FAERS Safety Report 16465135 (Version 2)
Quarter: 2019Q3

REPORT INFORMATION
  Report Type: Spontaneous
  Country: US (occurrence: US)
  Receive Date: 20190621
  Receipt Date: 20190810
  Transmission Date: 20191004
  Serious: Yes (Hospitalization, Other)
  Sender: FDA-Public Use
  Company Number: US-009507513-1906USA005124

PATIENT
  Age: 50 Year
  Sex: Female
  Weight: 133.35 kg

DRUGS (16)
  1. LACTATED RINGERS SOLUTION FUSO [Concomitant]
  2. EPINEPHRINE. [Concomitant]
     Active Substance: EPINEPHRINE
  3. LIDOCAINE. [Concomitant]
     Active Substance: LIDOCAINE
  4. AMIODARONE [Concomitant]
     Active Substance: AMIODARONE
  5. SODIUM BICARBONATE. [Concomitant]
     Active Substance: SODIUM BICARBONATE
  6. VERSED [Concomitant]
     Active Substance: MIDAZOLAM HYDROCHLORIDE
  7. ROCURONIUM BROMIDE. [Concomitant]
     Active Substance: ROCURONIUM BROMIDE
  8. ZOFRAN [Concomitant]
     Active Substance: ONDANSETRON HYDROCHLORIDE
  9. DECADRON [Concomitant]
     Active Substance: DEXAMETHASONE
  10. PHENYLEPHRINE [Concomitant]
     Active Substance: PHENYLEPHRINE HYDROCHLORIDE
  11. INTRALIPID [Concomitant]
     Active Substance: EGG PHOSPHOLIPIDS\GLYCERIN\SOYBEAN OIL
  12. FENTANYL. [Concomitant]
     Active Substance: FENTANYL
  13. ATROPINE. [Concomitant]
     Active Substance: ATROPINE
  14. CALCIUM CHLORIDE. [Concomitant]
     Active Substance: CALCIUM CHLORIDE
  15. BRIDION [Suspect]
     Active Substance: SUGAMMADEX
     Indication: ANAESTHESIA REVERSAL
     Dosage: 200 MILLIGRAM, ONCE
     Route: 042
     Dates: start: 20181030, end: 20181030
  16. PROPOFOL. [Concomitant]
     Active Substance: PROPOFOL

REACTIONS (2)
  - Bradycardia [Recovered/Resolved]
  - Cardiac arrest [Recovered/Resolved]

NARRATIVE: CASE EVENT DATE: 20181030
